FAERS Safety Report 20278783 (Version 3)
Quarter: 2022Q1

REPORT INFORMATION
  Report Type: Spontaneous
  Country: US (occurrence: US)
  Receive Date: 20220103
  Receipt Date: 20220326
  Transmission Date: 20220423
  Serious: Yes (Death, Life-Threatening, Other)
  Sender: FDA-Public Use
  Company Number: US-NOVARTISPH-NVSC2021US300384

PATIENT
  Age: 67 Year
  Sex: Female
  Weight: 58.2 kg

DRUGS (52)
  1. KYMRIAH [Suspect]
     Active Substance: TISAGENLECLEUCEL
     Indication: Diffuse large B-cell lymphoma refractory
     Dosage: UNK, ONCE/SINGLE (4.3 X 10E8 CAR T CELLS)
     Route: 041
     Dates: start: 20211227
  2. ANAKINRA [Concomitant]
     Active Substance: ANAKINRA
     Indication: Neurotoxicity
     Dosage: 100 MG, QD (7 DAYS)
     Route: 058
     Dates: start: 20211228, end: 20220103
  3. ANAKINRA [Concomitant]
     Active Substance: ANAKINRA
     Dosage: 100 MG, QD (8 DAYS)
     Route: 058
     Dates: start: 20220113, end: 20220120
  4. METHYLPREDNISOLONE [Concomitant]
     Active Substance: METHYLPREDNISOLONE
     Indication: Neurotoxicity
     Dosage: 500 MG, QD
     Route: 042
     Dates: start: 20211228, end: 20211229
  5. METHYLPREDNISOLONE [Concomitant]
     Active Substance: METHYLPREDNISOLONE
     Dosage: 500 MG, Q12H
     Route: 042
     Dates: start: 20211229, end: 20211231
  6. METHYLPREDNISOLONE [Concomitant]
     Active Substance: METHYLPREDNISOLONE
     Dosage: 500 MG, Q12H
     Route: 042
     Dates: start: 20220113, end: 20220117
  7. METHYLPREDNISOLONE [Concomitant]
     Active Substance: METHYLPREDNISOLONE
     Dosage: 250 MG
     Route: 042
     Dates: start: 20220117, end: 20220118
  8. METHYLPREDNISOLONE [Concomitant]
     Active Substance: METHYLPREDNISOLONE
     Dosage: 125 MG
     Route: 042
     Dates: start: 20220119, end: 20220120
  9. METHYLPREDNISOLONE [Concomitant]
     Active Substance: METHYLPREDNISOLONE
     Dosage: 60 MG
     Route: 042
     Dates: start: 20220121, end: 20220123
  10. METHYLPREDNISOLONE [Concomitant]
     Active Substance: METHYLPREDNISOLONE
     Dosage: 40 MG
     Route: 042
     Dates: start: 20220123, end: 20220126
  11. METHYLPREDNISOLONE [Concomitant]
     Active Substance: METHYLPREDNISOLONE
     Dosage: 30 MG
     Route: 042
     Dates: start: 20220126, end: 20220130
  12. METHYLPREDNISOLONE [Concomitant]
     Active Substance: METHYLPREDNISOLONE
     Dosage: 20 MG
     Route: 042
     Dates: start: 20220130, end: 20220204
  13. CEFEPIME [Concomitant]
     Active Substance: CEFEPIME HYDROCHLORIDE
     Indication: Febrile neutropenia
     Dosage: 2 G, Q8H
     Route: 042
     Dates: start: 20211227, end: 20211229
  14. CEFEPIME [Concomitant]
     Active Substance: CEFEPIME HYDROCHLORIDE
     Indication: Bacteraemia
     Dosage: 2 G, Q8H
     Route: 042
     Dates: start: 20220108, end: 20220111
  15. CEFEPIME [Concomitant]
     Active Substance: CEFEPIME HYDROCHLORIDE
     Dosage: 2 G, Q8H
     Route: 042
     Dates: start: 20220203, end: 20220204
  16. CIPROFLOXACIN [Concomitant]
     Active Substance: CIPROFLOXACIN
     Indication: Abdominal infection
     Dosage: 400 MG
     Route: 042
     Dates: start: 20220107
  17. DAPTOMYCIN [Concomitant]
     Active Substance: DAPTOMYCIN
     Indication: Bacteraemia
     Dosage: 600 MG, QD
     Route: 042
     Dates: start: 20220202, end: 20220204
  18. FILGRASTIM [Concomitant]
     Active Substance: FILGRASTIM
     Indication: Neutropenia
     Dosage: 480 MCG/ML, QD
     Route: 058
     Dates: start: 20220109, end: 20220111
  19. FILGRASTIM [Concomitant]
     Active Substance: FILGRASTIM
     Dosage: 480 MCG/ML, QD
     Route: 058
     Dates: start: 20220128
  20. FILGRASTIM [Concomitant]
     Active Substance: FILGRASTIM
     Dosage: 480 MCG/ML, QD
     Route: 058
     Dates: start: 20220201
  21. FILGRASTIM [Concomitant]
     Active Substance: FILGRASTIM
     Dosage: 480 MCG/ML, QD
     Route: 058
     Dates: start: 20220203
  22. FLUCONAZOLE [Concomitant]
     Active Substance: FLUCONAZOLE
     Indication: Antifungal treatment
     Dosage: 200 MG
     Route: 042
     Dates: start: 20211228, end: 20220118
  23. FLUCONAZOLE [Concomitant]
     Active Substance: FLUCONAZOLE
     Dosage: 200 MG
     Route: 042
     Dates: start: 20220119, end: 20220122
  24. FLUCONAZOLE [Concomitant]
     Active Substance: FLUCONAZOLE
     Dosage: 200 MG
     Route: 042
     Dates: start: 20220124, end: 20220204
  25. HUMAN IMMUNOGLOBULIN G [Concomitant]
     Active Substance: HUMAN IMMUNOGLOBULIN G
     Indication: Hypogammaglobulinaemia
     Dosage: 40 G
     Route: 042
     Dates: start: 20220203
  26. LACTATED RINGERS SOLUTION [Concomitant]
     Active Substance: CALCIUM CHLORIDE\POTASSIUM CHLORIDE\SODIUM CHLORIDE\SODIUM LACTATE
     Indication: Hypotension
     Dosage: UNK ((1L BOLUS X 3, 1 LITER X 3)
     Route: 042
     Dates: start: 20220107, end: 20220108
  27. LACTATED RINGERS SOLUTION [Concomitant]
     Active Substance: CALCIUM CHLORIDE\POTASSIUM CHLORIDE\SODIUM CHLORIDE\SODIUM LACTATE
     Dosage: UNK ((1L BOLUS X 3, 1 LITER X 3)
     Route: 042
     Dates: start: 20220201, end: 20220202
  28. LEVETIRACETAM [Concomitant]
     Active Substance: LEVETIRACETAM
     Indication: Seizure prophylaxis
     Dosage: 750 MG, BID
     Route: 042
     Dates: start: 20211228, end: 20220105
  29. LEVETIRACETAM [Concomitant]
     Active Substance: LEVETIRACETAM
     Dosage: 750 MG, QD
     Route: 042
     Dates: start: 20220106, end: 20220110
  30. LEVETIRACETAM [Concomitant]
     Active Substance: LEVETIRACETAM
     Dosage: 500 MG, QD
     Route: 042
     Dates: start: 20220111
  31. LEVETIRACETAM [Concomitant]
     Active Substance: LEVETIRACETAM
     Dosage: 500 MG, BID
     Route: 042
     Dates: start: 20220112, end: 20220204
  32. LEVOFLOXACIN [Concomitant]
     Active Substance: LEVOFLOXACIN
     Indication: Immunosuppression
     Dosage: 500 MG
     Route: 048
     Dates: start: 20220111
  33. LORAZEPAM [Concomitant]
     Active Substance: LORAZEPAM
     Indication: Anxiolytic therapy
     Dosage: 1 MG
     Route: 042
     Dates: start: 20220108, end: 20220113
  34. LORAZEPAM [Concomitant]
     Active Substance: LORAZEPAM
     Dosage: 1 MG
     Route: 042
     Dates: start: 20220113
  35. LORAZEPAM [Concomitant]
     Active Substance: LORAZEPAM
     Dosage: 1 MG
     Route: 042
     Dates: start: 20220114
  36. LORAZEPAM [Concomitant]
     Active Substance: LORAZEPAM
     Dosage: 0.5 MG
     Route: 042
     Dates: start: 20220204
  37. MEROPENEM [Concomitant]
     Active Substance: MEROPENEM
     Indication: Pyrexia
     Dosage: 2 G, Q8H
     Route: 042
     Dates: start: 20211229
  38. MEROPENEM [Concomitant]
     Active Substance: MEROPENEM
     Indication: Sepsis
     Dosage: 500 MG, Q6H
     Route: 065
     Dates: start: 20220201, end: 20220203
  39. METRONIDAZOLE [Concomitant]
     Active Substance: METRONIDAZOLE
     Indication: Clostridium difficile colitis
     Dosage: 500 MG, TID
     Route: 042
     Dates: start: 20220107, end: 20220112
  40. METRONIDAZOLE [Concomitant]
     Active Substance: METRONIDAZOLE
     Dosage: 500 MG, TID
     Route: 042
     Dates: start: 20220202, end: 20220204
  41. PENTAMIDINE [Concomitant]
     Active Substance: PENTAMIDINE
     Indication: Immunosuppression
     Dosage: 300 MG
     Route: 042
     Dates: start: 20220201
  42. VANCOMYCIN [Concomitant]
     Active Substance: VANCOMYCIN
     Indication: Pyrexia
     Dosage: 1 G, QD
     Route: 042
     Dates: start: 20211228, end: 20220202
  43. VANCOMYCIN [Concomitant]
     Active Substance: VANCOMYCIN
     Dosage: 500 MG, Q8H
     Route: 042
     Dates: start: 20211229, end: 20220102
  44. VANCOMYCIN [Concomitant]
     Active Substance: VANCOMYCIN
     Dosage: 1250 MG
     Route: 042
     Dates: start: 20220201
  45. ACYCLOVIR [Suspect]
     Active Substance: ACYCLOVIR
     Indication: Antiviral treatment
     Dosage: 800 MG, BID
     Route: 048
     Dates: start: 20211228, end: 20220107
  46. ACYCLOVIR [Suspect]
     Active Substance: ACYCLOVIR
     Dosage: 400 MG, BID
     Route: 065
     Dates: start: 20220107, end: 20220201
  47. ACYCLOVIR [Concomitant]
     Active Substance: ACYCLOVIR
     Indication: Antiviral treatment
     Dosage: 200 MG, BID
     Route: 042
     Dates: start: 20220202, end: 20220204
  48. ACETAMINOPHEN [Concomitant]
     Active Substance: ACETAMINOPHEN
     Indication: Pyrexia
     Dosage: 500 MG, Q6H
     Route: 048
     Dates: start: 20211228
  49. ACETAMINOPHEN [Concomitant]
     Active Substance: ACETAMINOPHEN
     Dosage: 500 MG, Q6H
     Route: 065
     Dates: start: 20211230, end: 20220101
  50. ACETAMINOPHEN [Concomitant]
     Active Substance: ACETAMINOPHEN
     Indication: Pyrexia
     Dosage: 650 MG, Q6H
     Route: 054
     Dates: start: 20211229
  51. NOREPINEPHRINE [Concomitant]
     Active Substance: NOREPINEPHRINE
     Indication: Hypotension
     Dosage: UNK(TITRATE)
     Route: 042
     Dates: start: 20220205
  52. VASOPRESSIN [Concomitant]
     Active Substance: VASOPRESSIN
     Indication: Hypotension
     Dosage: UNK (TITRATE)
     Route: 042
     Dates: start: 20220205

REACTIONS (8)
  - Septic shock [Fatal]
  - Clostridium difficile colitis [Fatal]
  - Immune effector cell-associated neurotoxicity syndrome [Recovering/Resolving]
  - Cytokine release syndrome [Recovered/Resolved]
  - Cytokine release syndrome [Recovered/Resolved]
  - Febrile neutropenia [Recovered/Resolved]
  - Thrombocytopenia [Unknown]
  - Neutropenia [Unknown]

NARRATIVE: CASE EVENT DATE: 20211227
